FAERS Safety Report 11083683 (Version 1)
Quarter: 2015Q2

REPORT INFORMATION
  Report Type: Spontaneous
  Country: NL (occurrence: NL)
  Receive Date: 20150501
  Receipt Date: 20150501
  Transmission Date: 20150821
  Serious: Yes (Hospitalization)
  Sender: FDA-Public Use
  Company Number: NL-TEVA-557860ISR

PATIENT
  Age: 79 Year
  Sex: Male
  Weight: 85 kg

DRUGS (1)
  1. NAPROXEN TEVA TABLET MSR 250MG [Suspect]
     Active Substance: NAPROXEN
     Indication: MYALGIA
     Dosage: 250 MILLIGRAM DAILY; ONCE DAILY ONE PIECE
     Route: 048
     Dates: start: 20150408, end: 20150411

REACTIONS (2)
  - Blood pressure increased [Recovering/Resolving]
  - Epistaxis [Recovering/Resolving]

NARRATIVE: CASE EVENT DATE: 20150408
